FAERS Safety Report 10367530 (Version 1)
Quarter: 2014Q1

REPORT INFORMATION
  Report Type: Spontaneous
  Country: US (occurrence: None)
  Receive Date: 20140306
  Receipt Date: 20140306
  Transmission Date: 20141002
  Serious: Yes (Hospitalization)
  Sender: FDA-Public Use
  Company Number: 163-21880-13024203

PATIENT
  Age: 50 Year
  Sex: Male

DRUGS (9)
  1. REVLIMID (LENALIDOMIDE) (15 MILLIGRAM, CAPSULES) [Suspect]
     Indication: PLASMA CELL MYELOMA
     Dosage: 14 I 14 DAYS.
     Route: 048
     Dates: start: 20120928
  2. ACYCLOVIR (ACICLOVIR) (UNKNOWN) [Concomitant]
  3. DEXAMETHASONE (UNKNOWN) [Concomitant]
  4. ESCITALOPRAM OXALATE (UNKNOWN) [Concomitant]
  5. LACTULOSE (UNKNOWN) [Concomitant]
  6. OMEPRAZOLE (UNKNOWN) [Concomitant]
  7. OXYCODONE HCL (OXYCODONE HYDROCHLORIDE) (UNKNOWN) [Concomitant]
  8. PERCOCET (OXYCOCET) (UNKNOWN) [Concomitant]
  9. PREVACID (LANSOPRAZOLE) (UNKNOWN) [Concomitant]

REACTIONS (1)
  - Bronchitis [None]
